FAERS Safety Report 10772183 (Version 1)
Quarter: 2015Q1

REPORT INFORMATION
  Report Type: Spontaneous
  Country: US (occurrence: US)
  Receive Date: 20150206
  Receipt Date: 20150206
  Transmission Date: 20150721
  Serious: Yes (Hospitalization)
  Sender: FDA-Public Use
  Company Number: US-ASTRAZENECA-2015SE11028

PATIENT
  Age: 2 Year
  Sex: Male

DRUGS (1)
  1. FARXIGA [Suspect]
     Active Substance: DAPAGLIFLOZIN PROPANEDIOL
     Dosage: TOOK 1 PIL, 1 UMOL
     Route: 048

REACTIONS (2)
  - Glycosuria [Unknown]
  - Drug administered to patient of inappropriate age [Recovered/Resolved]
